FAERS Safety Report 7343389-6 (Version None)
Quarter: 2011Q1

REPORT INFORMATION
  Report Type: 
  Country: None (occurrence: None)
  Receive Date: 20110308
  Receipt Date: 20110308
  Transmission Date: 20110831
  Serious: No
  Sender: FDA-Public Use
  Company Number: None

PATIENT
  Age: 43 Year
  Sex: Female
  Weight: 97.977 kg

DRUGS (1)
  1. MONTELUKAST SODIUM [Suspect]
     Indication: RHINITIS ALLERGIC
     Dosage: 1 TIME PER DAY PO
     Route: 048
     Dates: start: 20050301, end: 20050515

REACTIONS (5)
  - URTICARIA [None]
  - PRURITUS [None]
  - SKIN DISORDER [None]
  - IMMUNE SYSTEM DISORDER [None]
  - SCAR [None]
